FAERS Safety Report 22296259 (Version 1)
Quarter: 2023Q2

REPORT INFORMATION
  Report Type: Spontaneous
  Country: CN (occurrence: CN)
  Receive Date: 20230508
  Receipt Date: 20230508
  Transmission Date: 20230721
  Serious: Yes (Other)
  Sender: FDA-Public Use
  Company Number: CN-009507513-2305CHN001330

PATIENT
  Age: 85 Year
  Sex: Male
  Weight: 120 kg

DRUGS (2)
  1. CANCIDAS [Suspect]
     Active Substance: CASPOFUNGIN ACETATE
     Indication: Antifungal treatment
     Dosage: 50 MILLIGRAM/KILOGRAM, QD
     Route: 041
     Dates: start: 20230402, end: 20230404
  2. CANCIDAS [Suspect]
     Active Substance: CASPOFUNGIN ACETATE
     Indication: Urinary tract infection

REACTIONS (4)
  - Hepatic failure [Recovered/Resolved]
  - Suspected drug-induced liver injury [Recovered/Resolved]
  - Hypoproteinaemia [Recovered/Resolved]
  - Incorrect dose administered [Unknown]

NARRATIVE: CASE EVENT DATE: 20230402
